FAERS Safety Report 19188210 (Version 6)
Quarter: 2022Q2

REPORT INFORMATION
  Report Type: Spontaneous
  Country: JP (occurrence: JP)
  Receive Date: 20210428
  Receipt Date: 20220413
  Transmission Date: 20220721
  Serious: Yes (Other)
  Sender: FDA-Public Use
  Company Number: NVSJ2020JP006783

PATIENT
  Age: 30 Year
  Sex: Female
  Weight: 56 kg

DRUGS (2)
  1. COSENTYX [Suspect]
     Active Substance: SECUKINUMAB
     Indication: Psoriasis
     Dosage: 300 MG, 4W
     Route: 058
     Dates: start: 20191122, end: 20200610
  2. COSENTYX [Suspect]
     Active Substance: SECUKINUMAB
     Dosage: 300 MG, 4W
     Route: 058
     Dates: start: 20210528

REACTIONS (10)
  - Hyperemesis gravidarum [Recovered/Resolved]
  - Abortion threatened [Unknown]
  - Morning sickness [Unknown]
  - Upper respiratory tract inflammation [Unknown]
  - Diarrhoea [Unknown]
  - Infection [Unknown]
  - Delivery [Unknown]
  - Normal newborn [Unknown]
  - Maternal exposure during pregnancy [Unknown]
  - Maternal exposure during breast feeding [Unknown]

NARRATIVE: CASE EVENT DATE: 20200703
